FAERS Safety Report 25113055 (Version 1)
Quarter: 2025Q1

REPORT INFORMATION
  Report Type: Spontaneous
  Country: HR (occurrence: HR)
  Receive Date: 20250324
  Receipt Date: 20250324
  Transmission Date: 20250409
  Serious: Yes (Other)
  Sender: MERCK SHARP & DOHME LLC
  Company Number: HR-009507513-2264033

PATIENT
  Age: 75 Year

DRUGS (2)
  1. PEMBROLIZUMAB [Suspect]
     Active Substance: PEMBROLIZUMAB
     Indication: Renal cell carcinoma
     Route: 065
     Dates: start: 20240305
  2. IBRUTINIB [Concomitant]
     Active Substance: IBRUTINIB
     Route: 048

REACTIONS (6)
  - Bronchiectasis [Unknown]
  - Pneumonitis [Unknown]
  - Lung consolidation [Unknown]
  - Pulmonary septal thickening [Unknown]
  - Malignant neoplasm progression [Unknown]
  - Pulmonary mass [Unknown]

NARRATIVE: CASE EVENT DATE: 20240601
